FAERS Safety Report 16878759 (Version 5)
Quarter: 2019Q4

REPORT INFORMATION
  Report Type: Report from Study
  Country: CO (occurrence: CO)
  Receive Date: 20191002
  Receipt Date: 20191203
  Transmission Date: 20200122
  Serious: Yes (Other)
  Sender: FDA-Public Use
  Company Number: PHHY2018CO153215

PATIENT
  Sex: Female
  Weight: 64 kg

DRUGS (5)
  1. MEKINIST [Suspect]
     Active Substance: TRAMETINIB DIMETHYL SULFOXIDE
     Indication: METASTATIC MALIGNANT MELANOMA
     Dosage: 2 MG, QD
     Route: 048
     Dates: start: 20180926
  2. TAFINLAR [Suspect]
     Active Substance: DABRAFENIB MESYLATE
     Indication: METASTATIC MALIGNANT MELANOMA
     Dosage: 300 MG, QD
     Route: 048
     Dates: start: 20180926
  3. TAFINLAR [Suspect]
     Active Substance: DABRAFENIB MESYLATE
     Dosage: 300 MG, QD
     Route: 048
  4. HYDROMORPHONE [Concomitant]
     Active Substance: HYDROMORPHONE
     Indication: PRODUCT USED FOR UNKNOWN INDICATION
     Route: 065
  5. TAFINLAR [Suspect]
     Active Substance: DABRAFENIB MESYLATE
     Dosage: 300 MG, BID
     Route: 048

REACTIONS (25)
  - Insomnia [Recovering/Resolving]
  - Arthralgia [Unknown]
  - Vomiting [Unknown]
  - Nausea [Unknown]
  - Inflammation [Unknown]
  - Nausea [Recovered/Resolved]
  - Nasopharyngitis [Unknown]
  - Chills [Unknown]
  - Palpitations [Unknown]
  - Blister [Unknown]
  - Feeling hot [Unknown]
  - Abdominal pain upper [Unknown]
  - Malaise [Unknown]
  - Arthritis [Unknown]
  - Tremor [Unknown]
  - Cough [Unknown]
  - Inappropriate schedule of product administration [Unknown]
  - Dizziness [Unknown]
  - Feeling abnormal [Unknown]
  - Night sweats [Unknown]
  - Dry mouth [Unknown]
  - Hypothermia [Unknown]
  - Dyspnoea [Unknown]
  - Fatigue [Unknown]
  - Diarrhoea [Unknown]
